FAERS Safety Report 8320117-9 (Version None)
Quarter: 2012Q2

REPORT INFORMATION
  Report Type: 
  Country: None (occurrence: None)
  Receive Date: 20120430
  Receipt Date: 20120417
  Transmission Date: 20120825
  Serious: Yes (Death, Other)
  Sender: FDA-Public Use
  Company Number: JP-BRISTOL-MYERS SQUIBB COMPANY-15024425

PATIENT
  Age: 56 Year
  Sex: Female
  Weight: 53 kg

DRUGS (2)
  1. PARAPLATIN AQ [Suspect]
     Indication: LUNG SQUAMOUS CELL CARCINOMA STAGE UNSPECIFIED
     Dosage: DRUG INTERRUPTED.:29JUL2009 SUSPENDED FOR 3MONTHS
     Route: 041
     Dates: start: 20080111
  2. GEMZAR [Suspect]
     Indication: LUNG SQUAMOUS CELL CARCINOMA STAGE UNSPECIFIED
     Dosage: DRUG INTERRUPTED:5AUG2009 SUSPENDED FOR 3MONTHS
     Route: 041
     Dates: start: 20080812

REACTIONS (2)
  - SKIN FIBROSIS [None]
  - NEOPLASM MALIGNANT [None]
